FAERS Safety Report 9474910 (Version 1)
Quarter: 2013Q3

REPORT INFORMATION
  Report Type: Spontaneous
  Country: CA (occurrence: CA)
  Receive Date: 20130823
  Receipt Date: 20130823
  Transmission Date: 20140515
  Serious: Yes (Other)
  Sender: FDA-Public Use
  Company Number: CA-ROCHE-1264966

PATIENT
  Sex: 0

DRUGS (2)
  1. RITUXAN [Suspect]
     Indication: SJOGREN^S SYNDROME
     Route: 065
  2. RITUXAN [Suspect]
     Indication: PSEUDOLYMPHOMA

REACTIONS (1)
  - Polyarthritis [Not Recovered/Not Resolved]
